FAERS Safety Report 15393940 (Version 1)
Quarter: 2018Q3

REPORT INFORMATION
  Report Type: Spontaneous
  Country: US (occurrence: US)
  Receive Date: 20180917
  Receipt Date: 20180917
  Transmission Date: 20181010
  Serious: Yes (Other)
  Sender: FDA-Public Use
  Company Number: US-ASTRAZENECA-2018SF17705

PATIENT
  Sex: Male
  Weight: 76.2 kg

DRUGS (1)
  1. SYMBICORT [Suspect]
     Active Substance: BUDESONIDE\FORMOTEROL FUMARATE DIHYDRATE
     Dosage: 2 PUFFS, TWICE A DAY
     Route: 055

REACTIONS (6)
  - Asthma [Unknown]
  - Lung disorder [Unknown]
  - Cough [Unknown]
  - Deafness [Unknown]
  - Emphysema [Unknown]
  - Dyspnoea [Unknown]
